FAERS Safety Report 5813278-4 (Version None)
Quarter: 2008Q3

REPORT INFORMATION
  Report Type: 
  Country: None (occurrence: None)
  Receive Date: 20080717
  Receipt Date: 20080708
  Transmission Date: 20090109
  Serious: Yes (Hospitalization, Disabling, Other)
  Sender: FDA-Public Use
  Company Number: DE-JNJFOC-20080505015

PATIENT
  Age: 70 Year
  Sex: Male

DRUGS (5)
  1. ITRACOL [Suspect]
     Indication: ONYCHOMYCOSIS
     Route: 048
  2. ASPIRIN [Concomitant]
     Indication: PERIPHERAL ARTERIAL OCCLUSIVE DISEASE
     Route: 048
  3. DURAGESIC-100 [Concomitant]
     Indication: PAIN
     Route: 062
  4. BISOPROLOL FUMARATE [Concomitant]
     Indication: HYPERTENSION
     Route: 048
  5. DELIX [Concomitant]
     Indication: HYPERTENSION
     Route: 048

REACTIONS (2)
  - HEMIANOPIA [None]
  - VISUAL IMPAIRMENT [None]
